FAERS Safety Report 15696980 (Version 1)
Quarter: 2018Q4

REPORT INFORMATION
  Report Type: Spontaneous
  Country: None (occurrence: JP)
  Receive Date: 20181206
  Receipt Date: 20181206
  Transmission Date: 20190205
  Serious: Yes (Other)
  Sender: FDA-Public Use
  Company Number: JP-VIFOR (INTERNATIONAL) INC.-VIT-2018-12046

PATIENT
  Age: 5 Decade
  Sex: Male

DRUGS (1)
  1. MIRCERA [Suspect]
     Active Substance: METHOXY POLYETHYLENE GLYCOL-EPOETIN BETA
     Indication: NEPHROGENIC ANAEMIA
     Route: 042

REACTIONS (5)
  - Bile duct stone [Unknown]
  - Drug ineffective [Unknown]
  - Large granular lymphocytosis [Unknown]
  - Anaemia [Recovering/Resolving]
  - Aplasia pure red cell [Unknown]
